FAERS Safety Report 7369078-X (Version None)
Quarter: 2011Q1

REPORT INFORMATION
  Report Type: 
  Country: None (occurrence: None)
  Receive Date: 20110321
  Receipt Date: 20110321
  Transmission Date: 20110831
  Serious: No
  Sender: FDA-Public Use
  Company Number: None

PATIENT
  Sex: Female

DRUGS (4)
  1. COPAXONE [Concomitant]
  2. AMPYRA [Suspect]
     Indication: MULTIPLE SCLEROSIS
     Dosage: 10MG Q12H ORALLY
     Route: 048
     Dates: start: 20101101, end: 20110125
  3. SUMATRIPTAN [Concomitant]
  4. FAMOTIDINE [Concomitant]

REACTIONS (2)
  - INSOMNIA [None]
  - BACK PAIN [None]
